FAERS Safety Report 6601665-6 (Version None)
Quarter: 2010Q1

REPORT INFORMATION
  Report Type: 
  Country: None (occurrence: None)
  Receive Date: 20100225
  Receipt Date: 20100217
  Transmission Date: 20100710
  Serious: Yes (Other)
  Sender: FDA-Public Use
  Company Number: US-ROCHE-686336

PATIENT
  Age: 62 Year
  Sex: Female
  Weight: 63.6 kg

DRUGS (2)
  1. BONIVA [Suspect]
     Indication: BONE DENSITY DECREASED
     Route: 048
     Dates: start: 20091117
  2. LEVOTHYROXINE [Concomitant]

REACTIONS (1)
  - ENDODONTIC PROCEDURE [None]
